FAERS Safety Report 5195341-7 (Version None)
Quarter: 2006Q4

REPORT INFORMATION
  Report Type: 
  Country: None (occurrence: None)
  Receive Date: 20061229
  Receipt Date: 20061218
  Transmission Date: 20070319
  Serious: Yes (Life-Threatening, Hospitalization)
  Sender: FDA-Public Use
  Company Number: US-PFIZER INC-2006154908

PATIENT
  Age: 76 Year
  Sex: Male

DRUGS (11)
  1. SERTRALINE [Suspect]
     Indication: MAJOR DEPRESSION
     Dosage: DAILY DOSE:50MG
  2. ZIPRASIDONE (CAPS) [Suspect]
     Indication: MAJOR DEPRESSION
  3. CLONAZEPAM [Suspect]
     Indication: MAJOR DEPRESSION
  4. ZOLPIDEM TARTRATE [Suspect]
     Indication: MAJOR DEPRESSION
     Dosage: DAILY DOSE:10MG
  5. OLANZAPINE [Concomitant]
     Dosage: DAILY DOSE:5MG
  6. LEVOFLOXACIN [Concomitant]
     Indication: UPPER RESPIRATORY TRACT INFECTION
     Dosage: DAILY DOSE:500MG
  7. ISOSORBIDE MONONITRATE [Concomitant]
     Dosage: DAILY DOSE:30MG
  8. METOPROLOL SUCCINATE [Concomitant]
     Dosage: DAILY DOSE:25MG
  9. ENALAPRIL MALEATE [Concomitant]
     Dosage: DAILY DOSE:20MG
  10. ASPIRIN [Concomitant]
     Dosage: DAILY DOSE:81MG
  11. MIRTAZAPINE [Concomitant]
     Dosage: DAILY DOSE:15MG

REACTIONS (5)
  - ACUTE MYOCARDIAL INFARCTION [None]
  - CATATONIA [None]
  - DEHYDRATION [None]
  - MENTAL STATUS CHANGES [None]
  - SYNCOPE VASOVAGAL [None]
